FAERS Safety Report 19542511 (Version 2)
Quarter: 2021Q3

REPORT INFORMATION
  Report Type: Report from Study
  Country: None (occurrence: BR)
  Receive Date: 20210713
  Receipt Date: 20210817
  Transmission Date: 20211014
  Serious: Yes (Other)
  Sender: FDA-Public Use
  Company Number: BR-ABBVIE-21K-020-3984246-00

PATIENT
  Sex: Female
  Weight: 58 kg

DRUGS (8)
  1. ROSUVASTATIN. [Concomitant]
     Active Substance: ROSUVASTATIN
     Indication: BLOOD CHOLESTEROL INCREASED
  2. APROVEL [Concomitant]
     Active Substance: IRBESARTAN
     Indication: HYPERTENSION
  3. EZETIMIBE. [Concomitant]
     Active Substance: EZETIMIBE
     Indication: BLOOD CHOLESTEROL INCREASED
  4. ZYLORIC [Concomitant]
     Active Substance: ALLOPURINOL
     Indication: GOUT
  5. GLIFAGE [Concomitant]
     Active Substance: METFORMIN HYDROCHLORIDE
     Indication: DIABETES MELLITUS
  6. RINVOQ [Suspect]
     Active Substance: UPADACITINIB
     Route: 048
     Dates: start: 2021
  7. ZYLORIC [Concomitant]
     Active Substance: ALLOPURINOL
     Indication: BLOOD UREA INCREASED
  8. RINVOQ [Suspect]
     Active Substance: UPADACITINIB
     Indication: RHEUMATOID ARTHRITIS
     Route: 048
     Dates: start: 20210127, end: 2021

REACTIONS (6)
  - Abdominal pain lower [Unknown]
  - Skin hypertrophy [Recovered/Resolved]
  - Renal neoplasm [Unknown]
  - Renal hamartoma [Recovered/Resolved]
  - Tumour haemorrhage [Unknown]
  - Tumour rupture [Unknown]

NARRATIVE: CASE EVENT DATE: 2021
